FAERS Safety Report 12710054 (Version 2)
Quarter: 2017Q1

REPORT INFORMATION
  Report Type: Spontaneous
  Country: US (occurrence: US)
  Receive Date: 20160902
  Receipt Date: 20170307
  Transmission Date: 20170428
  Serious: No
  Sender: FDA-Public Use
  Company Number: US-ALEXION PHARMACEUTICALS INC.-A201606481

PATIENT
  Age: 29 Year
  Sex: Female

DRUGS (1)
  1. SOLIRIS [Suspect]
     Active Substance: ECULIZUMAB
     Indication: PAROXYSMAL NOCTURNAL HAEMOGLOBINURIA
     Dosage: 900 MG, Q2W
     Route: 042

REACTIONS (7)
  - Nausea [Not Recovered/Not Resolved]
  - Cytogenetic abnormality [Unknown]
  - Reticulocyte percentage abnormal [Unknown]
  - Pruritus [Not Recovered/Not Resolved]
  - Haemoglobin abnormal [Unknown]
  - Flushing [Not Recovered/Not Resolved]
  - Macrocytosis [Unknown]
